FAERS Safety Report 6469520-2 (Version None)
Quarter: 2009Q4

REPORT INFORMATION
  Report Type: 
  Country: None (occurrence: None)
  Receive Date: 20091203
  Receipt Date: 20091127
  Transmission Date: 20100525
  Serious: Yes (Other)
  Sender: FDA-Public Use
  Company Number: JP-PFIZER INC-2009304461

PATIENT
  Age: 80 Year
  Sex: Female

DRUGS (1)
  1. ATORVASTATIN CALCIUM [Suspect]
     Dosage: 10 MG, 1X/DAY
     Route: 048
     Dates: start: 20060101

REACTIONS (2)
  - CEREBRAL INFARCTION [None]
  - DEMENTIA [None]
